APPROVED DRUG PRODUCT: BLOXIVERZ
Active Ingredient: NEOSTIGMINE METHYLSULFATE
Strength: 10MG/10ML (1MG/ML)
Dosage Form/Route: SOLUTION;INTRAVENOUS
Application: N204078 | Product #002
Applicant: EXELA PHARMA SCIENCES LLC
Approved: May 31, 2013 | RLD: Yes | RS: No | Type: DISCN